FAERS Safety Report 6930262-8 (Version None)
Quarter: 2010Q3

REPORT INFORMATION
  Report Type: 
  Country: None (occurrence: None)
  Receive Date: 20100818
  Receipt Date: 20100809
  Transmission Date: 20110219
  Serious: Yes (Hospitalization)
  Sender: FDA-Public Use
  Company Number: JP-ELI_LILLY_AND_COMPANY-JP201006004890

PATIENT
  Age: 74 Year
  Sex: Female
  Weight: 43 kg

DRUGS (8)
  1. PEMETREXED [Suspect]
     Indication: LUNG ADENOCARCINOMA
     Dosage: 500 MG/M2, OTHER
     Route: 042
     Dates: start: 20100416, end: 20100416
  2. PEMETREXED [Suspect]
     Dosage: 400 MG/M2, OTHER
     Route: 042
     Dates: start: 20100511, end: 20100511
  3. CISPLATIN [Suspect]
     Indication: LUNG NEOPLASM MALIGNANT
     Dosage: 75 MG/M2, OTHER
     Route: 042
     Dates: start: 20100416, end: 20100416
  4. CISPLATIN [Suspect]
     Dosage: 60 MG/M2, OTHER
     Route: 042
     Dates: start: 20100511, end: 20100511
  5. PANVITAN [Concomitant]
     Indication: PROPHYLAXIS
     Dosage: 1 G, DAILY (1/D)
     Route: 048
     Dates: start: 20100324
  6. EMEND [Concomitant]
  7. ISOTONIC SOLUTIONS [Concomitant]
     Dosage: 37 ML, UNK
     Dates: start: 20100531
  8. ISOTONIC SOLUTIONS [Concomitant]
     Dosage: 5.5 ML, UNK

REACTIONS (1)
  - PULMONARY ARTERY THROMBOSIS [None]
